FAERS Safety Report 9448122 (Version 1)
Quarter: 2013Q3

REPORT INFORMATION
  Report Type: Spontaneous
  Country: CA (occurrence: None)
  Receive Date: 20130806
  Receipt Date: 20130806
  Transmission Date: 20140515
  Serious: Yes (Hospitalization)
  Sender: FDA-Public Use
  Company Number: 2013AL000459

PATIENT
  Age: 53 Year
  Sex: Female
  Weight: 55.78 kg

DRUGS (1)
  1. MACROBID [Suspect]
     Indication: PRODUCT USED FOR UNKNOWN INDICATION
     Route: 048

REACTIONS (4)
  - Hyperhidrosis [None]
  - Pulmonary fibrosis [None]
  - Nausea [None]
  - Pyrexia [None]
